FAERS Safety Report 8889070 (Version 1)
Quarter: 2012Q4

REPORT INFORMATION
  Report Type: 
  Country: US (occurrence: US)
  Receive Date: 20121106
  Receipt Date: 20121106
  Transmission Date: 20130627
  Serious: Yes (Hospitalization, Other)
  Sender: FDA-Public Use
  Company Number: US-B.I. PHARMACEUTICALS,INC./RIDGEFIELD-2012-EU-05448GD

PATIENT
  Age: 77 Year
  Sex: Male
  Weight: 63.2 kg

DRUGS (19)
  1. DABIGATRAN ETEXILATE [Suspect]
     Indication: CEREBROVASCULAR ACCIDENT PROPHYLAXIS
     Dosage: 300 mg
     Route: 048
  2. DABIGATRAN ETEXILATE [Suspect]
     Indication: ATRIAL FIBRILLATION
     Dosage: 150 mg
     Route: 048
  3. PANTOPRAZOLE [Suspect]
     Dosage: 40 mg
     Route: 048
  4. AMIODARONE [Suspect]
     Indication: ATRIAL FIBRILLATION
     Dosage: 200 mg
     Route: 048
  5. ASPIRIN [Suspect]
     Dosage: 81 mg
     Route: 048
  6. DIGOXIN [Suspect]
     Dosage: 0.125 mg
     Route: 048
  7. WARFARIN [Suspect]
     Indication: CEREBROVASCULAR ACCIDENT PROPHYLAXIS
     Dosage: 1 mg
  8. WARFARIN [Suspect]
     Indication: ATRIAL FIBRILLATION
  9. FINASTERIDE [Concomitant]
     Dosage: 5 mg
     Route: 048
  10. CITALOPRAM [Concomitant]
     Dosage: 20 mg
     Route: 048
  11. FUROSEMIDE [Concomitant]
     Dosage: 40 mg
     Route: 048
  12. GLIPIZIDE EXTENDED-RELEASE [Concomitant]
     Dosage: 2.5 mg
     Route: 048
  13. LISINOPRIL [Concomitant]
     Dosage: 5 mg
     Route: 048
  14. MEGESTROL ACETATE [Concomitant]
     Dosage: 800 mg
     Route: 048
  15. METOPROLOL [Concomitant]
     Dosage: 100 mg
     Route: 048
  16. MULTIVITAMIN [Concomitant]
     Route: 048
  17. SENNA [Concomitant]
     Indication: CONSTIPATION
     Route: 048
  18. TAMSULOSIN [Concomitant]
     Dosage: 0.4 mg
     Route: 048
  19. INSULIN LISPRO [Concomitant]
     Route: 058

REACTIONS (8)
  - Upper gastrointestinal haemorrhage [Recovered/Resolved]
  - Drug interaction [Recovered/Resolved]
  - Haematemesis [Recovered/Resolved]
  - Haemodynamic instability [Unknown]
  - International normalised ratio increased [Recovered/Resolved]
  - Activated partial thromboplastin time prolonged [Recovered/Resolved]
  - Malaise [Recovered/Resolved]
  - Nausea [Recovered/Resolved]
